FAERS Safety Report 14581938 (Version 2)
Quarter: 2018Q1

REPORT INFORMATION
  Report Type: Spontaneous
  Country: IL (occurrence: IL)
  Receive Date: 20180228
  Receipt Date: 20180302
  Transmission Date: 20180509
  Serious: Yes (Other)
  Sender: FDA-Public Use
  Company Number: DE-UCBSA-2018007328

PATIENT
  Age: 38 Year
  Sex: Female

DRUGS (6)
  1. LEVETIRACETAM. [Suspect]
     Active Substance: LEVETIRACETAM
     Indication: EPILEPSY
     Dosage: UNKNOWN DOSE
  2. CARBAMAZEPINE. [Suspect]
     Active Substance: CARBAMAZEPINE
     Indication: EPILEPSY
     Dosage: UNKNOWN DOSE
  3. VALPROATE SODIUM. [Suspect]
     Active Substance: VALPROATE SODIUM
     Dosage: DAILY DOSE: 1000 MG MILLIGRAM(S) EVERY DAY
  4. VALPROATE SODIUM. [Suspect]
     Active Substance: VALPROATE SODIUM
     Indication: EPILEPSY
     Dosage: UNK
  5. CLOBAZAM [Suspect]
     Active Substance: CLOBAZAM
     Indication: EPILEPSY
     Dosage: UNKNOWN DOSE
  6. TOPIRAMATE. [Suspect]
     Active Substance: TOPIRAMATE
     Indication: EPILEPSY
     Dosage: UNKNOWN DOSE

REACTIONS (11)
  - Bradyphrenia [Recovering/Resolving]
  - Gait disturbance [Recovering/Resolving]
  - Encephalopathy [Unknown]
  - Asterixis [Recovering/Resolving]
  - Hyperammonaemia [Recovering/Resolving]
  - Disturbance in attention [Recovering/Resolving]
  - Vomiting [Unknown]
  - Nausea [Unknown]
  - Multiple-drug resistance [Unknown]
  - Fall [Recovering/Resolving]
  - Ataxia [Recovering/Resolving]
